FAERS Safety Report 15360314 (Version 4)
Quarter: 2019Q2

REPORT INFORMATION
  Report Type: Spontaneous
  Country: US (occurrence: US)
  Receive Date: 20180907
  Receipt Date: 20190603
  Transmission Date: 20190711
  Serious: No
  Sender: FDA-Public Use
  Company Number: US-PFIZER INC-2018359376

PATIENT
  Age: 51 Year
  Sex: Female
  Weight: 88.45 kg

DRUGS (8)
  1. DILANTIN [Suspect]
     Active Substance: PHENYTOIN
     Dosage: 250 MG, UNK
     Route: 048
     Dates: start: 2010, end: 20160209
  2. DILANTIN [Suspect]
     Active Substance: PHENYTOIN
     Dosage: 30 MG, UNK
  3. DILANTIN [Suspect]
     Active Substance: PHENYTOIN
     Indication: SEIZURE
     Dosage: 100 MG, THREE TIMES A DAY
     Route: 048
     Dates: start: 2008
  4. DILANTIN [Suspect]
     Active Substance: PHENYTOIN
     Dosage: 300 MG, UNK
     Route: 048
     Dates: start: 2016
  5. DILANTIN [Suspect]
     Active Substance: PHENYTOIN
     Dosage: 50 MG, ONCE A DAY (FOR 90 DAYS)/AT BEDTIME
     Route: 048
  6. DILANTIN [Suspect]
     Active Substance: PHENYTOIN
     Dosage: 300 MG, ONCE A DAY
     Route: 048
     Dates: start: 2008
  7. DILANTIN [Suspect]
     Active Substance: PHENYTOIN
     Dosage: 100 MG, TWICE A DAY(FOR 90 DAYS)
     Route: 048
  8. DILANTIN [Suspect]
     Active Substance: PHENYTOIN
     Dosage: 250 MG, 1X/DAY, [1 IN PM]
     Dates: start: 2008

REACTIONS (3)
  - Product dispensing error [Unknown]
  - Anticonvulsant drug level abnormal [Recovered/Resolved]
  - Intentional product use issue [Unknown]
